FAERS Safety Report 6754613-2 (Version None)
Quarter: 2010Q2

REPORT INFORMATION
  Report Type: 
  Country: None (occurrence: None)
  Receive Date: 20100524
  Receipt Date: 20100401
  Transmission Date: 20101027
  Serious: No
  Sender: FDA-Public Use
  Company Number: 009572

PATIENT
  Sex: Male
  Weight: 141.5 kg

DRUGS (6)
  1. CIMZIA [Suspect]
     Indication: CROHN'S DISEASE
     Dosage: 400 MG SUBCUTANEOUS
     Route: 058
     Dates: start: 20100316
  2. ASACOL [Concomitant]
  3. PRILOSEC /00661201/ [Concomitant]
  4. PREDNISONE [Concomitant]
  5. LIBRAX [Concomitant]
  6. DAILY MULTIVITAMIN [Concomitant]

REACTIONS (1)
  - UPPER RESPIRATORY TRACT INFECTION [None]
